FAERS Safety Report 8315518-9 (Version None)
Quarter: 2012Q2

REPORT INFORMATION
  Report Type: 
  Country: None (occurrence: None)
  Receive Date: 20120426
  Receipt Date: 20120417
  Transmission Date: 20120825
  Serious: Yes (Hospitalization)
  Sender: FDA-Public Use
  Company Number: CA-MPIJNJ-2012-02637

PATIENT
  Age: 1 Year
  Sex: Female
  Weight: 24 kg

DRUGS (6)
  1. VELCADE [Suspect]
     Indication: ACUTE MYELOID LEUKAEMIA
     Dosage: 1.3 MG/M2, CYCLIC
     Route: 040
     Dates: start: 20120330, end: 20120407
  2. CYTARABINE [Suspect]
     Dosage: 30 MG, CYCLIC
     Route: 037
     Dates: start: 20120404, end: 20120404
  3. CYTARABINE [Suspect]
     Indication: ACUTE MYELOID LEUKAEMIA
     Dosage: 100 MG/M2, CYCLIC
     Route: 042
     Dates: start: 20120330, end: 20120409
  4. ETOPOSIDE [Suspect]
     Indication: ACUTE MYELOID LEUKAEMIA
     Dosage: 100 MG/M2, CYCLIC
     Route: 042
     Dates: start: 20120330, end: 20120403
  5. DAUNORUBICIN HCL [Suspect]
     Indication: ACUTE MYELOID LEUKAEMIA
     Dosage: 50 MG/M2, CYCLIC
     Route: 042
     Dates: start: 20120330, end: 20120403
  6. CYTARABINE [Suspect]
     Dosage: UNK
     Route: 037

REACTIONS (2)
  - LUNG INFECTION [None]
  - ENCEPHALITIC INFECTION [None]
